FAERS Safety Report 7636338-4 (Version None)
Quarter: 2011Q3

REPORT INFORMATION
  Report Type: 
  Country: None (occurrence: None)
  Receive Date: 20110726
  Receipt Date: 20110621
  Transmission Date: 20111222
  Serious: Yes (Hospitalization)
  Sender: FDA-Public Use
  Company Number: US-GLAXOSMITHKLINE-A0933314A

PATIENT
  Age: 55 Year
  Sex: Female

DRUGS (18)
  1. NEURONTIN [Concomitant]
  2. MIRALAX [Concomitant]
  3. TYLENOL-500 [Concomitant]
  4. MAGNESIUM [Concomitant]
  5. FENTANYL [Concomitant]
  6. ZOFRAN [Concomitant]
  7. AMBIEN [Concomitant]
  8. VITAMIN D [Concomitant]
  9. RADIATION THERAPY [Concomitant]
  10. DILAUDID [Concomitant]
  11. XANAX [Concomitant]
  12. BENADRYL [Concomitant]
  13. FERROUS SULFATE TAB [Concomitant]
  14. CYMBALTA [Concomitant]
  15. PRILOSEC [Concomitant]
  16. TYKERB [Suspect]
     Indication: BREAST CANCER
     Dosage: 1000MG PER DAY
     Route: 048
     Dates: start: 20110611, end: 20110715
  17. POTASSIUM [Concomitant]
  18. PROAIR HFA [Concomitant]

REACTIONS (8)
  - DIZZINESS [None]
  - PAIN IN EXTREMITY [None]
  - HALLUCINATION [None]
  - RASH [None]
  - INSOMNIA [None]
  - MEMORY IMPAIRMENT [None]
  - DIARRHOEA [None]
  - FEELING ABNORMAL [None]
